FAERS Safety Report 22250496 (Version 1)
Quarter: 2023Q2

REPORT INFORMATION
  Report Type: Spontaneous
  Country: US (occurrence: None)
  Receive Date: 20230424
  Receipt Date: 20230424
  Transmission Date: 20230722
  Serious: No
  Sender: FDA-Public Use
  Company Number: None

PATIENT
  Age: 81 Year
  Sex: Female
  Weight: 44.55 kg

DRUGS (1)
  1. PRAMIPEXOLE [Suspect]
     Active Substance: PRAMIPEXOLE
     Indication: Restless legs syndrome
     Dosage: FREQUENCY : AT BEDTIME;?
     Route: 048
     Dates: start: 20220630, end: 20230423

REACTIONS (5)
  - Restless legs syndrome [None]
  - Dyspnoea [None]
  - Oedema [None]
  - Urinary incontinence [None]
  - Product substitution issue [None]

NARRATIVE: CASE EVENT DATE: 20230409
